FAERS Safety Report 19960278 (Version 4)
Quarter: 2022Q4

REPORT INFORMATION
  Report Type: Spontaneous
  Country: JP (occurrence: JP)
  Receive Date: 20211015
  Receipt Date: 20221207
  Transmission Date: 20230113
  Serious: Yes (Death, Hospitalization)
  Sender: FDA-Public Use
  Company Number: JP-DSJP-DSJ-2021-133866

PATIENT
  Age: 79 Year
  Sex: Male
  Weight: 65 kg

DRUGS (1)
  1. ENHERTU [Suspect]
     Active Substance: FAM-TRASTUZUMAB DERUXTECAN-NXKI
     Indication: HER2 positive gastric cancer
     Dosage: 6.4 MG/KG, ONCE EVERY 3 WK
     Route: 041
     Dates: start: 20210910, end: 20210910

REACTIONS (2)
  - Cholecystocholangitis [Unknown]
  - Disease progression [Fatal]

NARRATIVE: CASE EVENT DATE: 20210921
